FAERS Safety Report 8028891-6 (Version None)
Quarter: 2012Q1

REPORT INFORMATION
  Report Type: 
  Country: None (occurrence: None)
  Receive Date: 20120106
  Receipt Date: 20111219
  Transmission Date: 20120608
  Serious: Yes (Other)
  Sender: FDA-Public Use
  Company Number: JP-GLAXOSMITHKLINE-B0761509A

PATIENT
  Age: 52 Year
  Sex: Female

DRUGS (7)
  1. BLOOD TRANSFUSION [Concomitant]
     Route: 065
  2. ALOXI [Concomitant]
     Indication: PROPHYLAXIS OF NAUSEA AND VOMITING
     Dosage: .75MG PER DAY
     Route: 042
     Dates: start: 20110815
  3. GRANISETRON [Concomitant]
     Indication: PROPHYLAXIS OF NAUSEA AND VOMITING
     Dosage: 3MG PER DAY
     Route: 042
     Dates: start: 20110912, end: 20111017
  4. DEXAMETHASONE SODIUM PHOSPHATE [Concomitant]
     Indication: PROPHYLAXIS OF NAUSEA AND VOMITING
     Dosage: 3.3MG PER DAY
     Route: 042
     Dates: start: 20110815, end: 20111021
  5. STEROID [Concomitant]
     Route: 065
  6. CARBOPLATIN + PACLITAXEL [Concomitant]
     Route: 042
     Dates: start: 20110325, end: 20110519
  7. HYCAMTIN [Suspect]
     Indication: OVARIAN CANCER
     Route: 042
     Dates: start: 20110711

REACTIONS (3)
  - VITREOUS FLOATERS [None]
  - CONDITION AGGRAVATED [None]
  - VISUAL ACUITY REDUCED [None]
